FAERS Safety Report 13207421 (Version 1)
Quarter: 2017Q1

REPORT INFORMATION
  Report Type: Spontaneous
  Country: US (occurrence: US)
  Receive Date: 20170208
  Receipt Date: 20170208
  Transmission Date: 20170428
  Serious: Yes (Hospitalization)
  Sender: FDA-Public Use
  Company Number: None

PATIENT
  Age: 74 Year
  Sex: Male

DRUGS (11)
  1. INSULIN [Concomitant]
     Active Substance: INSULIN NOS
  2. LENALIDOMIDE [Concomitant]
     Active Substance: LENALIDOMIDE
  3. AMIODARONE [Concomitant]
     Active Substance: AMIODARONE
  4. FUROSEMIDE. [Concomitant]
     Active Substance: FUROSEMIDE
  5. WARFARIN [Concomitant]
     Active Substance: WARFARIN
  6. AMLODIPINE [Concomitant]
     Active Substance: AMLODIPINE BESYLATE
  7. REVLIMID [Suspect]
     Active Substance: LENALIDOMIDE
     Indication: PLASMA CELL MYELOMA
     Dosage: 10MG DAILY X 21D/28D ORAL
     Route: 048
     Dates: start: 201611
  8. LISINOPRIL. [Concomitant]
     Active Substance: LISINOPRIL
  9. NITROGLYCERIN SL [Concomitant]
  10. LOVASTATIN. [Concomitant]
     Active Substance: LOVASTATIN
  11. SERTRALINE [Concomitant]
     Active Substance: SERTRALINE HYDROCHLORIDE

REACTIONS (3)
  - Pneumonia [None]
  - Cardiac failure congestive [None]
  - Respiratory distress [None]

NARRATIVE: CASE EVENT DATE: 20170128
